FAERS Safety Report 9881867 (Version 2)
Quarter: 2014Q1

REPORT INFORMATION
  Report Type: Spontaneous
  Country: DE (occurrence: DE)
  Receive Date: 20140207
  Receipt Date: 20140212
  Transmission Date: 20141002
  Serious: Yes (Other)
  Sender: FDA-Public Use
  Company Number: DE-SA-2014SA015967

PATIENT
  Age: 71 Year
  Sex: Male

DRUGS (17)
  1. FLUOROURACIL [Suspect]
     Indication: COLON CANCER METASTATIC
     Dosage: FOLFOX 6 -REGIMEN?AS A CONTINUOUS INFUSION FOR 46 HOUR
     Route: 042
  2. FLUOROURACIL [Suspect]
     Indication: METASTASES TO LUNG
     Dosage: FOLFOX 6 -REGIMEN?AS A CONTINUOUS INFUSION FOR 46 HOUR
     Route: 042
  3. FLUOROURACIL [Suspect]
     Indication: COLON CANCER METASTATIC
     Dosage: FOLFORI 14-REGIMEN
     Route: 065
  4. FLUOROURACIL [Suspect]
     Indication: METASTASES TO LUNG
     Dosage: FOLFORI 14-REGIMEN
     Route: 065
  5. FLUOROURACIL [Suspect]
     Indication: COLON CANCER METASTATIC
     Route: 042
  6. FLUOROURACIL [Suspect]
     Indication: METASTASES TO LUNG
     Route: 042
  7. OXALIPLATIN [Suspect]
     Indication: COLON CANCER METASTATIC
     Route: 042
  8. OXALIPLATIN [Suspect]
     Indication: COLON CANCER METASTATIC
     Route: 042
  9. LEUCOVORIN [Suspect]
     Indication: COLON CANCER METASTATIC
     Dosage: FOLFOX-6 REGIMEN
     Route: 042
  10. LEUCOVORIN [Suspect]
     Indication: METASTASES TO LUNG
     Dosage: FOLFOX-6 REGIMEN
     Route: 042
  11. LEUCOVORIN [Suspect]
     Indication: COLON CANCER METASTATIC
     Dosage: FOLFORI-14 REGIMEN
     Route: 065
  12. LEUCOVORIN [Suspect]
     Indication: METASTASES TO LUNG
     Dosage: FOLFORI-14 REGIMEN
     Route: 065
  13. LEUCOVORIN [Suspect]
     Indication: COLON CANCER METASTATIC
     Dosage: FOLFORI-14 REGIMEN
     Route: 042
  14. LEUCOVORIN [Suspect]
     Indication: METASTASES TO LUNG
     Dosage: FOLFORI-14 REGIMEN
     Route: 042
  15. BEVACIZUMAB [Suspect]
     Indication: COLON CANCER METASTATIC
     Route: 065
  16. BEVACIZUMAB [Suspect]
     Indication: COLON CANCER METASTATIC
     Route: 065
  17. IRINOTECAN [Suspect]
     Indication: COLON CANCER METASTATIC
     Route: 065

REACTIONS (8)
  - Hypersensitivity vasculitis [Unknown]
  - Petechiae [Unknown]
  - Haemorrhage [Unknown]
  - Renal failure chronic [Unknown]
  - Blood creatinine increased [Unknown]
  - Blood urea increased [Unknown]
  - Haematuria [Unknown]
  - Nephrotic syndrome [Unknown]
